FAERS Safety Report 15460183 (Version 2)
Quarter: 2018Q4

REPORT INFORMATION
  Report Type: Spontaneous
  Country: US (occurrence: US)
  Receive Date: 20181003
  Receipt Date: 20181116
  Transmission Date: 20190204
  Serious: Yes (Other)
  Sender: FDA-Public Use
  Company Number: US-IMPAX LABORATORIES, INC-2018-IPXL-03259

PATIENT
  Age: 54 Year
  Sex: Male
  Weight: 88 kg

DRUGS (2)
  1. RYTARY [Suspect]
     Active Substance: CARBIDOPA\LEVODOPA
     Dosage: 36.25MG/145MG 6 CAPSULES PER DAY
     Route: 048
     Dates: start: 2017, end: 2018
  2. RYTARY [Suspect]
     Active Substance: CARBIDOPA\LEVODOPA
     Indication: PARKINSON^S DISEASE
     Dosage: 61.25 /245 MG, 7 CAPSULES PER DAY
     Route: 048
     Dates: start: 2017, end: 2018

REACTIONS (5)
  - Drug effect decreased [Unknown]
  - Prescribed overdose [Unknown]
  - Drug delivery device implantation [Unknown]
  - Hallucination [Recovered/Resolved]
  - On and off phenomenon [Recovered/Resolved]

NARRATIVE: CASE EVENT DATE: 20180920
